FAERS Safety Report 20653771 (Version 2)
Quarter: 2022Q2

REPORT INFORMATION
  Report Type: Spontaneous
  Country: US (occurrence: US)
  Receive Date: 20220330
  Receipt Date: 20220602
  Transmission Date: 20220721
  Serious: Yes (Other)
  Sender: FDA-Public Use
  Company Number: US-BRISTOL-MYERS SQUIBB COMPANY-2022-012581

PATIENT
  Age: 63 Year
  Sex: Female

DRUGS (2)
  1. POMALYST [Suspect]
     Active Substance: POMALIDOMIDE
     Indication: Plasma cell myeloma in remission
     Dosage: FREQUENCY- DAILY?BATCH NUMBER:C2473A, EXPIRE DATE: 31-MAR-2025
     Route: 048
     Dates: start: 20211023
  2. POMALYST [Suspect]
     Active Substance: POMALIDOMIDE
     Route: 048
     Dates: start: 202102

REACTIONS (4)
  - Burning sensation [Unknown]
  - Paraesthesia [Unknown]
  - Peripheral swelling [Unknown]
  - Neuropathy peripheral [Unknown]
